FAERS Safety Report 17894988 (Version 2)
Quarter: 2020Q3

REPORT INFORMATION
  Report Type: Spontaneous
  Country: US (occurrence: US)
  Receive Date: 20200615
  Receipt Date: 20200702
  Transmission Date: 20201103
  Serious: Yes (Hospitalization, Other)
  Sender: FDA-Public Use
  Company Number: US-ACCORD-184782

PATIENT
  Age: 4 Year
  Sex: Male

DRUGS (6)
  1. IFOSFAMIDE. [Suspect]
     Active Substance: IFOSFAMIDE
     Indication: PRIMITIVE NEUROECTODERMAL TUMOUR
  2. DEXRAZOXANE\DEXRAZOXANE HYDROCHLORIDE [Concomitant]
     Active Substance: DEXRAZOXANE HYDROCHLORIDE
     Indication: PROPHYLAXIS
  3. ETOPOSIDE. [Suspect]
     Active Substance: ETOPOSIDE
     Indication: PRIMITIVE NEUROECTODERMAL TUMOUR
  4. CYCLOPHOSPHAMIDE/CYCLOPHOSPHAMIDE MONOHYDRATE [Suspect]
     Active Substance: CYCLOPHOSPHAMIDE
     Indication: PRIMITIVE NEUROECTODERMAL TUMOUR
  5. DOXORUBICIN [Suspect]
     Active Substance: DOXORUBICIN
     Indication: PRIMITIVE NEUROECTODERMAL TUMOUR
  6. VINCRISTINE [Suspect]
     Active Substance: VINCRISTINE
     Indication: PRIMITIVE NEUROECTODERMAL TUMOUR

REACTIONS (3)
  - Bacteraemia [Unknown]
  - Off label use [Unknown]
  - Cardiac failure [Unknown]
